FAERS Safety Report 8479374-0 (Version None)
Quarter: 2012Q2

REPORT INFORMATION
  Report Type: 
  Country: None (occurrence: None)
  Receive Date: 20120629
  Receipt Date: 20110721
  Transmission Date: 20120825
  Serious: Yes (Other)
  Sender: FDA-Public Use
  Company Number: US-GENZYME-FABR-1001818

PATIENT
  Sex: Female

DRUGS (9)
  1. FABRAZYME [Suspect]
     Indication: FABRY'S DISEASE
     Dosage: 40 MG, Q2W
     Route: 042
     Dates: start: 20100101
  2. TRAZODONE HCL [Concomitant]
     Indication: INSOMNIA
     Dosage: 100 MG, UNK
     Route: 065
  3. PIROXICAM [Concomitant]
     Indication: ARTHRITIS
     Dosage: 20 MG, UNK
     Route: 065
  4. NEURONTIN [Concomitant]
     Indication: NEUROPATHY PERIPHERAL
     Dosage: 300 MG, UNK
     Route: 065
  5. WELLBUTRIN [Concomitant]
     Indication: DEPRESSION
     Dosage: 150 MG, BID
     Route: 048
  6. OMEPRAZOLE [Concomitant]
     Indication: GASTROOESOPHAGEAL REFLUX DISEASE
     Dosage: 20 MG, UNK
     Route: 065
  7. NUVIGIL [Concomitant]
     Indication: FATIGUE
     Dosage: 250 MG, UNK
     Route: 065
  8. FLUOXETINE [Concomitant]
     Indication: DEPRESSION
     Dosage: 40 MG, UNK
     Route: 065
  9. FABRAZYME [Suspect]
     Dosage: 45 MG, Q2W
     Route: 042
     Dates: start: 20100101

REACTIONS (1)
  - BREAST CANCER [None]
